FAERS Safety Report 22287389 (Version 1)
Quarter: 2023Q2

REPORT INFORMATION
  Report Type: Spontaneous
  Country: US (occurrence: US)
  Receive Date: 20230505
  Receipt Date: 20230505
  Transmission Date: 20230722
  Serious: No
  Sender: FDA-Public Use
  Company Number: US-SA-SAC20230502000844

PATIENT
  Sex: Male

DRUGS (1)
  1. DUPIXENT [Suspect]
     Active Substance: DUPILUMAB
     Dosage: DOSE OR AMOUNT: 200MG FREQUENCY: OTHER
     Route: 058

REACTIONS (6)
  - Condition aggravated [Unknown]
  - Erythema [Unknown]
  - Dermatitis [Unknown]
  - Dry skin [Unknown]
  - Eyelid margin crusting [Unknown]
  - Inappropriate schedule of product administration [Unknown]
